FAERS Safety Report 23019234 (Version 1)
Quarter: 2023Q4

REPORT INFORMATION
  Report Type: Spontaneous
  Country: CA (occurrence: CA)
  Receive Date: 20231003
  Receipt Date: 20231003
  Transmission Date: 20240110
  Serious: Yes (Other)
  Sender: FDA-Public Use
  Company Number: None

PATIENT
  Age: 64 Year
  Sex: Male

DRUGS (1)
  1. OZEMPIC [Suspect]
     Active Substance: SEMAGLUTIDE
     Indication: Diabetes mellitus management
     Dosage: 0.25 MG, QW

REACTIONS (3)
  - Oropharyngeal pain [Recovering/Resolving]
  - Swelling [Recovering/Resolving]
  - Hypersensitivity [Recovering/Resolving]
